FAERS Safety Report 6582551-7 (Version None)
Quarter: 2010Q1

REPORT INFORMATION
  Report Type: 
  Country: None (occurrence: None)
  Receive Date: 20100216
  Receipt Date: 20100208
  Transmission Date: 20100710
  Serious: Yes (Hospitalization)
  Sender: FDA-Public Use
  Company Number: JP-ASTRAZENECA-2010SE05959

PATIENT
  Age: 88 Year
  Sex: Male
  Weight: 72 kg

DRUGS (4)
  1. SYMBICORT [Suspect]
     Indication: BRONCHITIS CHRONIC
     Dosage: 2 PUFFS ONCE, TOTAL DAILY DOSE: 320 UG
     Route: 055
     Dates: start: 20100202, end: 20100203
  2. CARDENALIN [Concomitant]
     Indication: HYPERTENSION
     Route: 048
     Dates: start: 19920704, end: 20100203
  3. DIOVAN [Concomitant]
     Indication: HYPERTENSION
     Route: 048
     Dates: start: 20010501, end: 20100203
  4. SPIRIVA [Concomitant]
     Indication: BRONCHITIS CHRONIC
     Route: 055
     Dates: start: 20010501, end: 20100203

REACTIONS (1)
  - CARDIAC FAILURE [None]
